FAERS Safety Report 8305220-1 (Version None)
Quarter: 2012Q2

REPORT INFORMATION
  Report Type: 
  Country: None (occurrence: None)
  Receive Date: 20120423
  Receipt Date: 20120412
  Transmission Date: 20120825
  Serious: Yes (Other)
  Sender: FDA-Public Use
  Company Number: JP-VERTEX PHARMACEUTICALS INC.-AE-2012-002184

PATIENT
  Age: 59 Year
  Sex: Male

DRUGS (11)
  1. PEGINTERFERON ALFA-2B [Concomitant]
     Indication: HEPATITIS C
     Route: 051
  2. REBETOL [Concomitant]
     Route: 048
     Dates: start: 20120131, end: 20120219
  3. REBETOL [Concomitant]
     Indication: HEPATITIS C
     Route: 048
     Dates: end: 20120130
  4. DOGMATYL [Concomitant]
     Route: 048
     Dates: start: 20111227, end: 20120220
  5. TELAVIC (TELAPREVIR) [Suspect]
     Indication: HEPATITIS C
     Route: 048
     Dates: start: 20111227, end: 20120109
  6. PEGINTERFERON ALFA-2B [Concomitant]
     Route: 051
     Dates: start: 20120103
  7. TELAVIC (TELAPREVIR) [Suspect]
     Route: 048
     Dates: start: 20120110, end: 20120219
  8. PEGINTERFERON ALFA-2B [Concomitant]
     Route: 051
     Dates: start: 20120130
  9. EPADEL [Concomitant]
     Route: 048
     Dates: start: 20111227, end: 20120220
  10. PEGINTERFERON ALFA-2B [Concomitant]
     Route: 051
     Dates: start: 20120116
  11. PEGINTERFERON ALFA-2B [Concomitant]
     Route: 051
     Dates: start: 20120206, end: 20120213

REACTIONS (2)
  - PLATELET COUNT DECREASED [None]
  - RENAL IMPAIRMENT [None]
